FAERS Safety Report 9005401 (Version 3)
Quarter: 2013Q1

REPORT INFORMATION
  Report Type: Spontaneous
  Country: DE (occurrence: DE)
  Receive Date: 20130108
  Receipt Date: 20130327
  Transmission Date: 20140127
  Serious: Yes (Other)
  Sender: FDA-Public Use
  Company Number: DE-PFIZER INC-2013006143

PATIENT
  Age: 75 Year
  Sex: Female
  Weight: 65 kg

DRUGS (3)
  1. LYRICA [Suspect]
     Indication: PAIN IN EXTREMITY
     Dosage: 75 MG, 1X/DAY (SLOWLY INCREASE OF DOSE TO 75 MG PER DAY)
     Dates: start: 20121114, end: 20130103
  2. LYRICA [Suspect]
     Dosage: 75 MG, 2X/DAY
     Dates: start: 201301
  3. TRYPTOPHAN, L- [Concomitant]

REACTIONS (5)
  - Autonomic nervous system imbalance [Recovered/Resolved]
  - Complex regional pain syndrome [Unknown]
  - Insomnia [Recovered/Resolved]
  - Restlessness [Unknown]
  - Withdrawal syndrome [Unknown]
